FAERS Safety Report 7910345-6 (Version None)
Quarter: 2011Q4

REPORT INFORMATION
  Report Type: 
  Country: None (occurrence: None)
  Receive Date: 20111111
  Receipt Date: 20111027
  Transmission Date: 20120403
  Serious: Yes (Other)
  Sender: FDA-Public Use
  Company Number: US-ROCHE-791219

PATIENT
  Sex: Female
  Weight: 49.94 kg

DRUGS (2)
  1. ACCUTANE [Suspect]
  2. ACCUTANE [Suspect]
     Indication: ACNE
     Route: 065
     Dates: start: 20031117, end: 20040101

REACTIONS (13)
  - HAEMORRHOIDS [None]
  - SUBSTANCE ABUSE [None]
  - POST PROCEDURAL INFECTION [None]
  - PANIC ATTACK [None]
  - COLITIS ULCERATIVE [None]
  - EMOTIONAL DISTRESS [None]
  - RECTAL POLYP [None]
  - POUCHITIS [None]
  - PULMONARY EMBOLISM [None]
  - SUICIDAL IDEATION [None]
  - INFLAMMATORY BOWEL DISEASE [None]
  - NEPHROLITHIASIS [None]
  - DEPRESSION [None]
